FAERS Safety Report 8719959 (Version 2)
Quarter: 2013Q2

REPORT INFORMATION
  Report Type: Report from Study
  Country: JP (occurrence: JP)
  Receive Date: 20120813
  Receipt Date: 20130410
  Transmission Date: 20140414
  Serious: Yes (Other)
  Sender: FDA-Public Use
  Company Number: JP-VERTEX PHARMACEUTICALS INC.-AE-2012-011850

PATIENT
  Age: 57 Year
  Sex: Female

DRUGS (4)
  1. VX-950 (TELAPREVIR) [Suspect]
     Indication: CHRONIC HEPATITIS C
     Dosage: 2250 MG, QD
     Route: 048
     Dates: start: 20120613
  2. RIBAVIRIN [Suspect]
     Indication: CHRONIC HEPATITIS C
     Dosage: 600 MG, QD
     Route: 048
     Dates: start: 20120613, end: 20120625
  3. RIBAVIRIN [Suspect]
     Dosage: 400 MG, QD
     Route: 048
     Dates: start: 20120626
  4. PEGINTERFERON ALFA-2B [Suspect]
     Indication: CHRONIC HEPATITIS C
     Dosage: 1.5 ?G/KG, QW
     Route: 058
     Dates: start: 20120613

REACTIONS (1)
  - Angioedema [Recovered/Resolved]
